FAERS Safety Report 20008924 (Version 1)
Quarter: 2021Q4

REPORT INFORMATION
  Report Type: Spontaneous
  Country: US (occurrence: US)
  Receive Date: 20211028
  Receipt Date: 20211028
  Transmission Date: 20220303
  Serious: Yes (Other)
  Sender: FDA-Public Use
  Company Number: US-TEVA-2021-US-1968855

PATIENT
  Age: 63 Year
  Sex: Female

DRUGS (2)
  1. CLINDAMYCIN [Suspect]
     Active Substance: CLINDAMYCIN
     Indication: Skin laceration
     Dosage: COMPLETED A 10-DAY COURSE
     Route: 065
  2. CLINDAMYCIN [Suspect]
     Active Substance: CLINDAMYCIN
     Indication: Infection

REACTIONS (3)
  - Clostridium difficile infection [Unknown]
  - Intestinal dilatation [Unknown]
  - Gastrointestinal wall thickening [Unknown]
